FAERS Safety Report 16122334 (Version 1)
Quarter: 2019Q2

REPORT INFORMATION
  Report Type: Spontaneous
  Country: US (occurrence: US)
  Receive Date: 20190326
  Receipt Date: 20190326
  Transmission Date: 20190711
  Serious: Yes (Disabling)
  Sender: FDA-Public Use
  Company Number: None

PATIENT
  Age: 43 Year
  Sex: Female
  Weight: 67.5 kg

DRUGS (5)
  1. TACROLIMUS. [Concomitant]
     Active Substance: TACROLIMUS
  2. DOTAREM [Suspect]
     Active Substance: GADOTERATE MEGLUMINE
     Indication: SCAN WITH CONTRAST
     Route: 042
     Dates: start: 20181221, end: 20181221
  3. HUMIRA [Concomitant]
     Active Substance: ADALIMUMAB
  4. DOTAREM [Suspect]
     Active Substance: GADOTERATE MEGLUMINE
     Indication: INFLAMMATORY BOWEL DISEASE
     Route: 042
     Dates: start: 20181221, end: 20181221
  5. REMICADE [Concomitant]
     Active Substance: INFLIXIMAB

REACTIONS (11)
  - Nausea [None]
  - Musculoskeletal stiffness [None]
  - Drug level increased [None]
  - Headache [None]
  - Chest pain [None]
  - Bone pain [None]
  - Ear discomfort [None]
  - Disturbance in attention [None]
  - Toxicity to various agents [None]
  - Pain [None]
  - Pain in extremity [None]

NARRATIVE: CASE EVENT DATE: 20181221
